FAERS Safety Report 13911039 (Version 1)
Quarter: 2017Q3

REPORT INFORMATION
  Report Type: Spontaneous
  Country: US (occurrence: US)
  Receive Date: 20170828
  Receipt Date: 20170828
  Transmission Date: 20171127
  Serious: Yes (Other)
  Sender: FDA-Public Use
  Company Number: US-PFIZER INC-2017368052

PATIENT
  Age: 64 Year
  Sex: Female

DRUGS (6)
  1. ZOFRAN [Suspect]
     Active Substance: ONDANSETRON HYDROCHLORIDE
     Dosage: 4 MG, AS NEEDED, (EVERY 8 HOURS PRN)
  2. FUROSEMIDE. [Suspect]
     Active Substance: FUROSEMIDE
     Dosage: 40 MG, DAILY
  3. HYDROMORPHONE HYDROCHLORIDE. [Suspect]
     Active Substance: HYDROMORPHONE HYDROCHLORIDE
     Dosage: UNK
  4. METOPROLOL TARTRATE. [Suspect]
     Active Substance: METOPROLOL TARTRATE
     Dosage: 50 MG, DAILY
  5. NEURONTIN [Suspect]
     Active Substance: GABAPENTIN
     Dosage: 300 MG, UNK
  6. EPINEPHRINE. [Suspect]
     Active Substance: EPINEPHRINE
     Dosage: 4 MG, AS NEEDED, (EVERY 8 HOURS PRN)

REACTIONS (7)
  - Rheumatoid nodule [Unknown]
  - Cervical spinal stenosis [Unknown]
  - Blood albumin decreased [Unknown]
  - Red blood cell sedimentation rate increased [Unknown]
  - Arthralgia [Unknown]
  - Muscular weakness [Unknown]
  - Carbon dioxide increased [Unknown]
